FAERS Safety Report 11580314 (Version 2)
Quarter: 2015Q4

REPORT INFORMATION
  Report Type: Spontaneous
  Country: US (occurrence: US)
  Receive Date: 20150916
  Receipt Date: 20151110
  Transmission Date: 20160304
  Serious: No
  Sender: FDA-Public Use
  Company Number: US-ELI_LILLY_AND_COMPANY-US200804005543

PATIENT
  Age: 77 Year
  Sex: Female

DRUGS (2)
  1. FORTEO [Suspect]
     Active Substance: TERIPARATIDE
     Indication: OSTEOPOROSIS
     Dosage: 20 UG, QD
  2. BONIVA [Concomitant]
     Active Substance: IBANDRONATE SODIUM

REACTIONS (5)
  - Gastrooesophageal reflux disease [Unknown]
  - Osteoporosis [Unknown]
  - Injection site swelling [Recovered/Resolved]
  - Gastrointestinal disorder [Unknown]
  - Injection site bruising [Recovering/Resolving]

NARRATIVE: CASE EVENT DATE: 200804
